FAERS Safety Report 21233303 (Version 2)
Quarter: 2022Q3

REPORT INFORMATION
  Report Type: Spontaneous
  Country: US (occurrence: US)
  Receive Date: 20220819
  Receipt Date: 20220822
  Transmission Date: 20221026
  Serious: No
  Sender: FDA-Public Use
  Company Number: US-TAKEDA-2022TUS057337

PATIENT
  Age: 54 Year
  Sex: Female
  Weight: 70 kg

DRUGS (3)
  1. PRUCALOPRIDE [Suspect]
     Active Substance: PRUCALOPRIDE
     Indication: Irritable bowel syndrome
     Dosage: 1 MILLIGRAM, QD
     Route: 065
     Dates: start: 202203
  2. PRUCALOPRIDE [Suspect]
     Active Substance: PRUCALOPRIDE
     Indication: Endometriosis
     Dosage: 2 MILLIGRAM, QD
     Route: 065
     Dates: start: 202204
  3. ARMOUR THYROID [Concomitant]
     Active Substance: THYROID, PORCINE
     Indication: Hypothyroidism
     Route: 065

REACTIONS (2)
  - Abdominal distension [Unknown]
  - Product physical issue [Unknown]

NARRATIVE: CASE EVENT DATE: 20220815
